FAERS Safety Report 9346460 (Version 1)
Quarter: 2013Q2

REPORT INFORMATION
  Report Type: Spontaneous
  Country: US (occurrence: US)
  Receive Date: 20130613
  Receipt Date: 20130613
  Transmission Date: 20140414
  Serious: No
  Sender: FDA-Public Use
  Company Number: US-PFIZER INC-2013178739

PATIENT
  Age: 55 Year
  Sex: Female
  Weight: 113 kg

DRUGS (7)
  1. LYRICA [Suspect]
     Indication: NEUROPATHY PERIPHERAL
     Dosage: 150 MG, 3X/DAY
  2. LYRICA [Suspect]
     Dosage: 150 MG, 4X/DAY
  3. LYRICA [Suspect]
     Dosage: 150 MG, UNK
  4. ASPIRIN [Concomitant]
     Dosage: 81 MG, UNK
  5. CALCIUM [Concomitant]
     Dosage: UNK
  6. CLONIDINE [Concomitant]
     Indication: HOT FLUSH
     Dosage: 1 MG, 1X/DAY
  7. VITAMIN D [Concomitant]
     Dosage: UNK

REACTIONS (3)
  - Blister [Not Recovered/Not Resolved]
  - Ulcer [Unknown]
  - Gait disturbance [Unknown]
